FAERS Safety Report 10399513 (Version 1)
Quarter: 2014Q1

REPORT INFORMATION
  Report Type: Spontaneous
  Country: US (occurrence: None)
  Receive Date: 20130815
  Receipt Date: 20130815
  Transmission Date: 20141002
  Serious: Yes (Life-Threatening, Hospitalization, Other)
  Sender: FDA-Public Use
  Company Number: ADR-2012-01777

PATIENT
  Age: 65 Year
  Sex: Female

DRUGS (2)
  1. LIORESAL INTRATHECAL (BACLOFEN INJECTION) 2000 MCG/ML [Suspect]
     Indication: MUSCLE SPASTICITY
  2. LIORESAL INTRATHECAL (BACLOFEN INJECTION) 2000 MCG/ML [Suspect]
     Indication: MULTIPLE SCLEROSIS

REACTIONS (7)
  - Hypotonia [None]
  - Hypotension [None]
  - Hypothermia [None]
  - Respiratory failure [None]
  - Convulsion [None]
  - Unresponsive to stimuli [None]
  - Sepsis [None]
